FAERS Safety Report 13939189 (Version 2)
Quarter: 2017Q3

REPORT INFORMATION
  Report Type: Report from Study
  Country: US (occurrence: US)
  Receive Date: 20170906
  Receipt Date: 20170921
  Transmission Date: 20171127
  Serious: Yes (Hospitalization)
  Sender: FDA-Public Use
  Company Number: US-ROCHE-1983810

PATIENT
  Age: 52 Year
  Sex: Male
  Weight: 81.5 kg

DRUGS (2)
  1. ATEZOLIZUMAB. [Suspect]
     Active Substance: ATEZOLIZUMAB
     Indication: NEOPLASM
     Dosage: MOST RECENT DOSE PRIOR TO COUGH AND DYSPNEA: 27/APR/2017
     Route: 042
     Dates: start: 20151105
  2. RO 5509554 (CSF-1R MAB) [Suspect]
     Active Substance: EMACTUZUMAB
     Indication: NEOPLASM
     Dosage: MOST RECENT DOSE PRIOR TO COUGH AND DYSPNEA: 27/APR/2017
     Route: 042
     Dates: start: 20151105

REACTIONS (2)
  - Cough [Recovering/Resolving]
  - Dyspnoea [Recovered/Resolved]

NARRATIVE: CASE EVENT DATE: 20170822
